FAERS Safety Report 21908602 (Version 1)
Quarter: 2023Q1

REPORT INFORMATION
  Report Type: Spontaneous
  Country: US (occurrence: None)
  Receive Date: 20230124
  Receipt Date: 20230124
  Transmission Date: 20230417
  Serious: Yes (unspecified)
  Sender: FDA-Public Use
  Company Number: None

PATIENT
  Age: 24 Year
  Sex: Female

DRUGS (1)
  1. ARANESP [Suspect]
     Active Substance: DARBEPOETIN ALFA
     Dosage: OTHER FREQUENCY : WITH DIALYSIS;?
     Route: 058
     Dates: start: 20230110, end: 20230110

REACTIONS (3)
  - Device difficult to use [None]
  - Device safety feature issue [None]
  - Occupational exposure to product [None]

NARRATIVE: CASE EVENT DATE: 20230110
